FAERS Safety Report 6391804-7 (Version None)
Quarter: 2009Q4

REPORT INFORMATION
  Report Type: 
  Country: None (occurrence: None)
  Receive Date: 20091005
  Receipt Date: 20090925
  Transmission Date: 20100525
  Serious: Yes (Other)
  Sender: FDA-Public Use
  Company Number: ADR33722009

PATIENT
  Age: 57 Year
  Sex: Male

DRUGS (1)
  1. SIMVASTATIN [Suspect]
     Indication: TYPE V HYPERLIPIDAEMIA
     Dosage: 40 MG -1/1DAY

REACTIONS (3)
  - DYSPNOEA [None]
  - FATIGUE [None]
  - MUSCLE DISORDER [None]
